FAERS Safety Report 9804630 (Version 2)
Quarter: 2014Q1

REPORT INFORMATION
  Report Type: Spontaneous
  Country: GR (occurrence: GR)
  Receive Date: 20140108
  Receipt Date: 20140115
  Transmission Date: 20141002
  Serious: Yes (Death, Hospitalization)
  Sender: FDA-Public Use
  Company Number: GR-PFIZER INC-2014004288

PATIENT
  Age: 57 Year
  Sex: Male

DRUGS (6)
  1. SUTENT [Suspect]
     Indication: RENAL CANCER
     Dosage: 50 MG, CYCLIC (1 TABLET DAILY FOR 20 DAYS AND THEN 10 DAYS OFF)
     Dates: start: 20130907
  2. MEDROL [Concomitant]
     Dosage: 16 MG, UNK
     Dates: end: 201311
  3. AMLODIPINE [Concomitant]
     Dosage: 5 MG, UNK
  4. STEDON [Concomitant]
     Indication: ANXIETY DISORDER
     Dosage: 5 MG, UNK (WITH GRADUAL DOSE REDUCTION)
  5. NEUROBION [Concomitant]
     Dosage: UNK
     Dates: end: 201311
  6. KEPPRA [Concomitant]
     Dosage: 500 MG, UNK
     Dates: end: 201311

REACTIONS (1)
  - Cerebrovascular accident [Fatal]
